FAERS Safety Report 22166821 (Version 1)
Quarter: 2023Q2

REPORT INFORMATION
  Report Type: Report from Study
  Country: BE (occurrence: BE)
  Receive Date: 20230403
  Receipt Date: 20230403
  Transmission Date: 20230721
  Serious: Yes (Hospitalization, Other)
  Sender: FDA-Public Use
  Company Number: BE-PFIZER INC-2018339496

PATIENT
  Age: 48 Year
  Sex: Male
  Weight: 92 kg

DRUGS (32)
  1. METHOTREXATE [Suspect]
     Active Substance: METHOTREXATE
     Indication: Philadelphia positive acute lymphocytic leukaemia
     Dosage: UNK, REGIMEN 1
     Route: 065
     Dates: start: 20160419, end: 20160419
  2. METHOTREXATE [Suspect]
     Active Substance: METHOTREXATE
     Dosage: UNK, REGIMEN 2
     Route: 065
     Dates: start: 20160519, end: 20160519
  3. METHOTREXATE [Suspect]
     Active Substance: METHOTREXATE
     Dosage: UNK, REGIMEN 3
     Route: 065
     Dates: start: 20160609, end: 20160609
  4. CYTARABINE [Suspect]
     Active Substance: CYTARABINE
     Indication: Philadelphia positive acute lymphocytic leukaemia
     Dosage: UNK, REGIMEN 1
     Route: 065
     Dates: start: 20160419, end: 20160419
  5. CYTARABINE [Suspect]
     Active Substance: CYTARABINE
     Dosage: UNK, REGIMEN 2
     Route: 065
     Dates: start: 20160519, end: 20160519
  6. CYTARABINE [Suspect]
     Active Substance: CYTARABINE
     Dosage: UNK, REGIMEN 3
     Route: 065
     Dates: start: 20160609, end: 20160609
  7. DOXORUBICIN [Suspect]
     Active Substance: DOXORUBICIN
     Indication: Philadelphia positive acute lymphocytic leukaemia
     Dosage: UNK, REGIMEN 1
     Route: 065
     Dates: start: 20160419, end: 20160419
  8. DOXORUBICIN [Suspect]
     Active Substance: DOXORUBICIN
     Dosage: UNK, REGIMEN 2
     Route: 065
     Dates: start: 20160519, end: 20160519
  9. DOXORUBICIN [Suspect]
     Active Substance: DOXORUBICIN
     Dosage: UNK, REGIMEN 3
     Route: 065
     Dates: start: 20160609, end: 20160609
  10. LEUCOVORIN [Suspect]
     Active Substance: LEUCOVORIN
     Indication: Philadelphia positive acute lymphocytic leukaemia
     Dosage: UNK, REGIMEN 1
     Route: 065
     Dates: start: 20160419, end: 20160419
  11. LEUCOVORIN [Suspect]
     Active Substance: LEUCOVORIN
     Dosage: UNK, REGIMEN 2
     Route: 065
     Dates: start: 20160519, end: 20160519
  12. LEUCOVORIN [Suspect]
     Active Substance: LEUCOVORIN
     Dosage: UNK, REGIMEN 3
     Route: 065
     Dates: start: 20160609, end: 20160609
  13. CYCLOPHOSPHAMIDE [Suspect]
     Active Substance: CYCLOPHOSPHAMIDE
     Indication: Philadelphia positive acute lymphocytic leukaemia
     Dosage: UNK, REGIMEN 1
     Route: 065
     Dates: start: 20160419, end: 20160419
  14. CYCLOPHOSPHAMIDE [Suspect]
     Active Substance: CYCLOPHOSPHAMIDE
     Dosage: UNK, REGIMEN 2
     Route: 065
     Dates: start: 20160519, end: 20160519
  15. CYCLOPHOSPHAMIDE [Suspect]
     Active Substance: CYCLOPHOSPHAMIDE
     Dosage: UNK, REGIMEN 3
     Route: 065
     Dates: start: 20160609, end: 20160609
  16. DEXAMETHASONE [Suspect]
     Active Substance: DEXAMETHASONE
     Indication: Philadelphia positive acute lymphocytic leukaemia
     Dosage: UNK, REGIMEN 1
     Route: 065
     Dates: start: 20160419, end: 20160419
  17. DEXAMETHASONE [Suspect]
     Active Substance: DEXAMETHASONE
     Dosage: UNK, REGIMEN 2
     Route: 065
     Dates: start: 20160519, end: 20160519
  18. DEXAMETHASONE [Suspect]
     Active Substance: DEXAMETHASONE
     Dosage: UNK, REGIMEN 3
     Route: 065
     Dates: start: 20160609, end: 20160609
  19. METHYLPREDNISOLONE [Suspect]
     Active Substance: METHYLPREDNISOLONE
     Indication: Product used for unknown indication
     Dosage: UNK, REGIMEN 1
     Route: 065
     Dates: start: 20160419, end: 20160419
  20. METHYLPREDNISOLONE [Suspect]
     Active Substance: METHYLPREDNISOLONE
     Dosage: UNK, REGIMEN 2
     Route: 065
     Dates: start: 20160519, end: 20160519
  21. METHYLPREDNISOLONE [Suspect]
     Active Substance: METHYLPREDNISOLONE
     Dosage: UNK, REGIMEN 3
     Route: 065
     Dates: start: 20160609, end: 20160609
  22. VINCRISTINE [Suspect]
     Active Substance: VINCRISTINE
     Indication: Philadelphia positive acute lymphocytic leukaemia
     Dosage: UNK, REGIMEN 1
     Route: 065
     Dates: start: 20160419, end: 20160419
  23. VINCRISTINE [Suspect]
     Active Substance: VINCRISTINE
     Dosage: UNK, REGIMEN 2
     Route: 065
     Dates: start: 20160519, end: 20160519
  24. VINCRISTINE [Suspect]
     Active Substance: VINCRISTINE
     Dosage: UNK, REGIMEN 3
     Route: 065
     Dates: start: 20160609, end: 20160609
  25. NEULASTA [Suspect]
     Active Substance: PEGFILGRASTIM
     Indication: Product used for unknown indication
     Dosage: 6 MILLIGRAM, QD (6 MG/0.6 ML)
     Route: 065
     Dates: start: 20160529, end: 20161107
  26. ICLUSIG [Suspect]
     Active Substance: PONATINIB
     Indication: Philadelphia positive acute lymphocytic leukaemia
     Dosage: 45 MILLIGRAM, QD
     Route: 065
     Dates: start: 20160426
  27. PRIMPERAN [Concomitant]
     Active Substance: METOCLOPRAMIDE HYDROCHLORIDE
     Dosage: UNK
     Route: 065
     Dates: end: 20161107
  28. ACYCLOVIR [Concomitant]
     Active Substance: ACYCLOVIR
     Dosage: UNK
     Route: 065
     Dates: end: 20161107
  29. CALCIUM CARBONATE [Concomitant]
     Active Substance: CALCIUM CARBONATE
     Dosage: UNK
     Route: 065
  30. PENTACARINAT [Concomitant]
     Active Substance: PENTAMIDINE ISETHIONATE
     Dosage: UNK
     Route: 065
     Dates: end: 20160519
  31. RANITIDINE [Concomitant]
     Active Substance: RANITIDINE
     Dosage: UNK
     Route: 065
     Dates: start: 20160412, end: 20161107
  32. CIALIS [Concomitant]
     Active Substance: TADALAFIL
     Dosage: UNK
     Route: 065
     Dates: start: 20160412, end: 20161107

REACTIONS (3)
  - Inflammation [Recovered/Resolved]
  - Pyrexia [Recovered/Resolved]
  - Neutropenia [Recovered/Resolved]

NARRATIVE: CASE EVENT DATE: 20160614
